FAERS Safety Report 14959770 (Version 3)
Quarter: 2018Q2

REPORT INFORMATION
  Report Type: Report from Study
  Country: DE (occurrence: DE)
  Receive Date: 20180531
  Receipt Date: 20180618
  Transmission Date: 20180711
  Serious: Yes (Life-Threatening, Hospitalization, Other)
  Sender: FDA-Public Use
  Company Number: DE-BRISTOL-MYERS SQUIBB COMPANY-BMS-2018-048537

PATIENT
  Age: 85 Year
  Sex: Female
  Weight: 51 kg

DRUGS (1)
  1. APIXABAN [Suspect]
     Active Substance: APIXABAN
     Indication: CEREBROVASCULAR ACCIDENT PROPHYLAXIS
     Dosage: 2.5 MG, BID
     Route: 048
     Dates: end: 20180426

REACTIONS (4)
  - Post procedural haemorrhage [Unknown]
  - Carotid artery stenosis [Recovered/Resolved]
  - Vertebral artery stenosis [Not Recovered/Not Resolved]
  - Amaurosis fugax [Recovering/Resolving]

NARRATIVE: CASE EVENT DATE: 20180426
